FAERS Safety Report 4472661-2 (Version None)
Quarter: 2004Q4

REPORT INFORMATION
  Report Type: 
  Country: None (occurrence: None)
  Receive Date: 20041012
  Receipt Date: 20041012
  Transmission Date: 20050328
  Serious: Yes (Other)
  Sender: FDA-Public Use
  Company Number: None

PATIENT
  Sex: Female

DRUGS (3)
  1. LANOXIN [Suspect]
     Indication: CORONARY ARTERY DISEASE
     Dosage: 125 MCG Q DAY
  2. LANOXIN [Suspect]
     Indication: HYPERTENSION
     Dosage: 125 MCG Q DAY
  3. CAPOTEN [Suspect]
     Indication: DIABETES MELLITUS NON-INSULIN-DEPENDENT
     Dosage: 12.5  ONE BID

REACTIONS (2)
  - STOMACH DISCOMFORT [None]
  - URTICARIA [None]
